FAERS Safety Report 4370455-X (Version None)
Quarter: 2004Q2

REPORT INFORMATION
  Report Type: 
  Country: None (occurrence: None)
  Receive Date: 20040603
  Receipt Date: 20040126
  Transmission Date: 20050107
  Serious: Yes (Hospitalization)
  Sender: FDA-Public Use
  Company Number: US-BRISTOL-MYERS SQUIBB COMPANY-12486916

PATIENT
  Age: 8 Year
  Sex: Male
  Weight: 34 kg

DRUGS (4)
  1. ABILIFY [Suspect]
     Route: 048
     Dates: start: 20031008, end: 20031012
  2. ADDERALL 10 [Concomitant]
     Dosage: 6 AM AND NOON
  3. DEPAKOTE [Concomitant]
     Dosage: DEPAKOTE XR @ 0600 AND 1930
  4. CLONIDINE HCL [Concomitant]
     Dosage: 0.05 MG @ 1600; 0.1 MG @ 0600, 1200, AND 1930

REACTIONS (2)
  - GRIMACING [None]
  - MUSCLE TIGHTNESS [None]
